FAERS Safety Report 6615346-6 (Version None)
Quarter: 2010Q1

REPORT INFORMATION
  Report Type: 
  Country: None (occurrence: None)
  Receive Date: 20100305
  Receipt Date: 20090804
  Transmission Date: 20100710
  Serious: No
  Sender: FDA-Public Use
  Company Number: A0800428A

PATIENT
  Age: 42 Year
  Sex: Female

DRUGS (3)
  1. REQUIP [Suspect]
     Indication: RESTLESS LEGS SYNDROME
     Dosage: .5MG SEE DOSAGE TEXT
     Route: 048
  2. ROPINIROLE [Suspect]
     Indication: RESTLESS LEGS SYNDROME
     Route: 048
     Dates: start: 20080605
  3. REQUIP XL [Suspect]
     Indication: RESTLESS LEGS SYNDROME
     Dosage: 2MG AT NIGHT
     Route: 048
     Dates: start: 20090701, end: 20090101

REACTIONS (5)
  - DRUG INEFFECTIVE [None]
  - DYSKINESIA [None]
  - INSOMNIA [None]
  - RASH GENERALISED [None]
  - SOMNOLENCE [None]
